FAERS Safety Report 12432197 (Version 1)
Quarter: 2016Q2

REPORT INFORMATION
  Report Type: Spontaneous
  Country: US (occurrence: None)
  Receive Date: 20160602
  Receipt Date: 20160602
  Transmission Date: 20160815
  Serious: No
  Sender: FDA-Public Use
  Company Number: None

PATIENT
  Age: 55 Year
  Sex: Female

DRUGS (4)
  1. AFINITOR [Suspect]
     Active Substance: EVEROLIMUS
     Indication: PLASMA CELL MYELOMA
     Route: 048
     Dates: start: 201605
  2. AROMASIN [Concomitant]
     Active Substance: EXEMESTANE
  3. EXENESTABEM [Concomitant]
  4. TAMOXIFEN [Concomitant]
     Active Substance: TAMOXIFEN

REACTIONS (1)
  - Tongue blistering [None]

NARRATIVE: CASE EVENT DATE: 201605
